FAERS Safety Report 8437417-4 (Version None)
Quarter: 2012Q2

REPORT INFORMATION
  Report Type: 
  Country: None (occurrence: None)
  Receive Date: 20120614
  Receipt Date: 20120322
  Transmission Date: 20120825
  Serious: No
  Sender: FDA-Public Use
  Company Number: US-AMGEN-USASP2012018484

PATIENT
  Age: 77 Year
  Sex: Female

DRUGS (8)
  1. CALCIUM [Concomitant]
     Dosage: UNK UNK, QD
  2. LOVASTATIN [Concomitant]
     Dosage: 1 MG, QD
  3. VITAMIN TAB [Concomitant]
     Dosage: UNK UNK, QD
  4. MULTIVITAMIN [Concomitant]
     Dosage: UNK UNK, BID
  5. VITAMIN D [Concomitant]
     Dosage: UNK UNK, QD
  6. HYDROCODONE BITARTRATE + ACETAMINOPHEN [Concomitant]
  7. PROLIA [Suspect]
     Indication: OSTEOPOROSIS POSTMENOPAUSAL
     Dosage: UNK UNK, Q6MO
     Dates: start: 20100501
  8. MAGNESIUM [Concomitant]
     Dosage: UNK UNK, QD

REACTIONS (4)
  - ARTHRALGIA [None]
  - MUSCULOSKELETAL STIFFNESS [None]
  - BACK PAIN [None]
  - PAIN [None]
